FAERS Safety Report 5528604-3 (Version None)
Quarter: 2007Q4

REPORT INFORMATION
  Report Type: 
  Country: None (occurrence: None)
  Receive Date: 20071121
  Receipt Date: 20071107
  Transmission Date: 20080405
  Serious: Yes (Hospitalization)
  Sender: FDA-Public Use
  Company Number: B0495827A

PATIENT
  Sex: 0

DRUGS (3)
  1. RETROVIR [Suspect]
     Indication: ANTIVIRAL PROPHYLAXIS
     Dosage: 2 MG/KG / FOUR TIMES PER DAY / ORAL
     Route: 048
  2. COMBIVIR [Suspect]
     Indication: ANTIVIRAL PROPHYLAXIS
     Dosage: TRANSPLACENTARY
     Route: 064
  3. NEVIRAPINE [Suspect]
     Indication: ANTIVIRAL PROPHYLAXIS
     Dosage: TRANSPLACENTARY
     Route: 064

REACTIONS (5)
  - CAESAREAN SECTION [None]
  - CONGENITAL ANAEMIA [None]
  - CONGENITAL MALARIA [None]
  - DRUG EXPOSURE DURING PREGNANCY [None]
  - NORMOCHROMIC NORMOCYTIC ANAEMIA [None]
